FAERS Safety Report 6425993-2 (Version None)
Quarter: 2009Q4

REPORT INFORMATION
  Report Type: 
  Country: None (occurrence: None)
  Receive Date: 20091103
  Receipt Date: 20091022
  Transmission Date: 20100525
  Serious: Yes (Other)
  Sender: FDA-Public Use
  Company Number: PHEH2009US14287

PATIENT

DRUGS (1)
  1. ZOMETA [Suspect]

REACTIONS (2)
  - DEMYELINATING POLYNEUROPATHY [None]
  - MUSCULAR WEAKNESS [None]
